FAERS Safety Report 5073258-6 (Version None)
Quarter: 2006Q3

REPORT INFORMATION
  Report Type: 
  Country: None (occurrence: None)
  Receive Date: 20060802
  Receipt Date: 20060727
  Transmission Date: 20061208
  Serious: Yes (Life-Threatening, Hospitalization, Other)
  Sender: FDA-Public Use
  Company Number: 2006029165

PATIENT
  Age: 56 Year
  Sex: Female
  Weight: 88.4514 kg

DRUGS (4)
  1. SUTENT [Suspect]
     Indication: GASTROINTESTINAL STROMAL TUMOUR
     Dosage: 50 MG (50 MG 1 IN 1 D) ORAL
     Route: 048
     Dates: start: 20050808, end: 20060202
  2. EPINASTINE HYDROCHLORIDE (EPINASTINE HYDROCHLORIDE) [Concomitant]
  3. LOTREL [Concomitant]
  4. ZIAC [Concomitant]

REACTIONS (4)
  - GENERAL PHYSICAL HEALTH DETERIORATION [None]
  - HYPOTENSION [None]
  - IMPAIRED HEALING [None]
  - SEPSIS [None]
